FAERS Safety Report 10778086 (Version 2)
Quarter: 2015Q1

REPORT INFORMATION
  Report Type: Spontaneous
  Country: US (occurrence: US)
  Receive Date: 20150209
  Receipt Date: 20150330
  Transmission Date: 20150721
  Serious: No
  Sender: FDA-Public Use
  Company Number: US-PFIZER INC-2015040162

PATIENT
  Age: 77 Year
  Sex: Female

DRUGS (14)
  1. CENTRUM SILVER [Concomitant]
     Active Substance: VITAMINS
     Dosage: UNK UNK, 1X/DAY
  2. ACETYLSALICYLIC ACID [Concomitant]
     Active Substance: ASPIRIN
     Dosage: 81 MG, 1X/DAY
  3. PREVACID [Concomitant]
     Active Substance: LANSOPRAZOLE
     Dosage: UNK, 1X/DAY
  4. IMODIUM [Concomitant]
     Active Substance: LOPERAMIDE HYDROCHLORIDE
     Indication: COLECTOMY TOTAL
     Dosage: 2 DF, 3X/DAY
  5. GLIPIZIDE. [Concomitant]
     Active Substance: GLIPIZIDE
     Dosage: 10 MG, 2X/DAY
  6. TRICOR [Concomitant]
     Active Substance: FENOFIBRATE
     Dosage: 45 MG, 1X/DAY
  7. LANTUS [Concomitant]
     Active Substance: INSULIN GLARGINE
     Dosage: 30 IU, UNK (H.S)
  8. ELIQUIS [Concomitant]
     Active Substance: APIXABAN
     Dosage: 5 MG, 2X/DAY
     Dates: start: 201010
  9. DILTIAZEM [Concomitant]
     Active Substance: DILTIAZEM
     Dosage: 300 MG, 1X/DAY
  10. VITAMIN D3 [Concomitant]
     Active Substance: CHOLECALCIFEROL
     Dosage: UNK
  11. TIKOSYN [Suspect]
     Active Substance: DOFETILIDE
     Indication: ATRIAL FIBRILLATION
     Dosage: 500 ?G, 2X/DAY
     Dates: start: 20141007
  12. METOPROLOL [Concomitant]
     Active Substance: METOPROLOL
     Dosage: 100 MG, 2X/DAY
     Dates: start: 201010
  13. IMODIUM [Concomitant]
     Active Substance: LOPERAMIDE HYDROCHLORIDE
     Indication: INTESTINAL RESECTION
  14. AVAPRO [Concomitant]
     Active Substance: IRBESARTAN
     Dosage: 150 MG, 1X/DAY

REACTIONS (5)
  - Nasal congestion [Unknown]
  - Sinus disorder [Unknown]
  - Headache [Unknown]
  - Sinus headache [Unknown]
  - Acute sinusitis [Not Recovered/Not Resolved]

NARRATIVE: CASE EVENT DATE: 20141203
